FAERS Safety Report 23506630 (Version 1)
Quarter: 2024Q1

REPORT INFORMATION
  Report Type: Spontaneous
  Country: US (occurrence: US)
  Receive Date: 20240209
  Receipt Date: 20240209
  Transmission Date: 20240410
  Serious: Yes (Other)
  Sender: FDA-Public Use
  Company Number: US-IBSA PHARMA INC.-2023IBS000119

PATIENT

DRUGS (3)
  1. TIROSINT-SOL [Suspect]
     Active Substance: LEVOTHYROXINE SODIUM
     Indication: Hypothyroidism
     Dosage: UNK UNK, QD
     Dates: start: 2018
  2. TIROSINT-SOL [Suspect]
     Active Substance: LEVOTHYROXINE SODIUM
     Dosage: 75 MICROGRAM, QD
     Route: 048
     Dates: start: 2022
  3. TIROSINT-SOL [Suspect]
     Active Substance: LEVOTHYROXINE SODIUM
     Dosage: 75 MICROGRAM, QD
     Route: 048

REACTIONS (17)
  - Hypothyroidism [Not Recovered/Not Resolved]
  - Low density lipoprotein increased [Recovered/Resolved]
  - High density lipoprotein increased [Recovered/Resolved]
  - Brain fog [Unknown]
  - Weight increased [Unknown]
  - Thyroid function test abnormal [Not Recovered/Not Resolved]
  - Blood glucose increased [Recovered/Resolved]
  - Glycosylated haemoglobin increased [Not Recovered/Not Resolved]
  - Fatigue [Unknown]
  - Poor quality sleep [Unknown]
  - Aspartate aminotransferase increased [Recovered/Resolved]
  - Alanine aminotransferase increased [Recovered/Resolved]
  - Recalled product administered [Unknown]
  - Product packaging quantity issue [Unknown]
  - Product taste abnormal [Unknown]
  - Liver function test abnormal [Not Recovered/Not Resolved]
  - Blood cholesterol increased [Not Recovered/Not Resolved]

NARRATIVE: CASE EVENT DATE: 20230101
